FAERS Safety Report 11941413 (Version 3)
Quarter: 2016Q1

REPORT INFORMATION
  Report Type: Report from Study
  Country: IN (occurrence: IN)
  Receive Date: 20160122
  Receipt Date: 20160219
  Transmission Date: 20160526
  Serious: Yes (Death)
  Sender: FDA-Public Use
  Company Number: IN-B.I. PHARMACEUTICALS,INC./RIDGEFIELD-2016-BI-03425BI

PATIENT
  Age: 48 Year
  Sex: Female
  Weight: 30.5 kg

DRUGS (5)
  1. MUCAINE [Concomitant]
     Active Substance: ALUMINUM HYDROXIDE\DIMETHICONE\MAGNESIUM HYDROXIDE
     Indication: PROPHYLAXIS
     Dosage: 40 ML
     Route: 048
     Dates: start: 20160107
  2. BIBW 2992 [Suspect]
     Active Substance: AFATINIB
     Indication: SQUAMOUS CELL CARCINOMA OF HEAD AND NECK
     Dosage: 20 MG
     Route: 048
     Dates: start: 20151109
  3. PANTOCID [Concomitant]
     Indication: PROPHYLAXIS
     Dosage: 80 MG
     Route: 048
     Dates: start: 20160107
  4. THYRONORM [Concomitant]
     Active Substance: LEVOTHYROXINE
     Indication: HYPOTHYROIDISM
     Dosage: 25 MCG
     Route: 048
     Dates: start: 20151216
  5. VITCOFOL [Concomitant]
     Indication: VITAMIN SUPPLEMENTATION
     Dosage: 40 ML
     Route: 048
     Dates: start: 20160107

REACTIONS (1)
  - Death [Fatal]

NARRATIVE: CASE EVENT DATE: 20160116
